FAERS Safety Report 15696282 (Version 2)
Quarter: 2019Q1

REPORT INFORMATION
  Report Type: Spontaneous
  Country: FR (occurrence: FR)
  Receive Date: 20181206
  Receipt Date: 20190220
  Transmission Date: 20190417
  Serious: Yes (Other)
  Sender: FDA-Public Use
  Company Number: FR-009507513-1811FRA010691

PATIENT
  Age: 36 Year
  Sex: Female

DRUGS (1)
  1. DIPROSTENE [Suspect]
     Active Substance: BETAMETHASONE DIPROPIONATE\BETAMETHASONE SODIUM PHOSPHATE
     Indication: EXOSTOSIS
     Dosage: 1 DOSAGE FORM, ONCE
     Route: 026
     Dates: start: 20181026

REACTIONS (4)
  - Swollen tongue [Recovered/Resolved]
  - Rash [Recovering/Resolving]
  - Paraesthesia oral [Recovered/Resolved]
  - Throat tightness [Recovered/Resolved]

NARRATIVE: CASE EVENT DATE: 20181027
